FAERS Safety Report 7354198-6 (Version None)
Quarter: 2011Q1

REPORT INFORMATION
  Report Type: 
  Country: None (occurrence: None)
  Receive Date: 20110316
  Receipt Date: 20110307
  Transmission Date: 20110831
  Serious: Yes (Hospitalization)
  Sender: FDA-Public Use
  Company Number: US-BIOGENIDEC-2011BI008936

PATIENT
  Age: 50 Year
  Sex: Female
  Weight: 63 kg

DRUGS (5)
  1. LIPITOR [Concomitant]
     Indication: BLOOD CHOLESTEROL INCREASED
  2. AVONEX [Suspect]
     Indication: MULTIPLE SCLEROSIS
     Route: 030
     Dates: start: 19940101, end: 20030101
  3. NEURONTIN [Concomitant]
     Indication: NEURALGIA
     Dates: start: 19900101
  4. AVONEX [Suspect]
     Route: 030
     Dates: start: 20030101
  5. TEGRETOL [Concomitant]
     Indication: NEURALGIA
     Dates: start: 19900101

REACTIONS (6)
  - SUICIDAL IDEATION [None]
  - COMA [None]
  - STAPHYLOCOCCAL INFECTION [None]
  - COLLAPSE OF LUNG [None]
  - PNEUMONIA [None]
  - PANCREATIC DISORDER [None]
